FAERS Safety Report 7623251 (Version 4)
Quarter: 2014Q1

REPORT INFORMATION
  Report Type: Spontaneous
  Country: US (occurrence: US)
  Receive Date: 20101011
  Receipt Date: 20140117
  Transmission Date: 20141002
  Serious: Yes (Hospitalization, Other)
  Sender: FDA-Public Use
  Company Number: US-BAYER-201036108NA

PATIENT
  Age: 23 Year
  Sex: Female
  Weight: 86.6 kg

DRUGS (8)
  1. OCELLA [Suspect]
     Indication: ACNE
     Dosage: UNK
     Route: 048
     Dates: start: 200903, end: 201001
  2. ALBUTEROL [Concomitant]
  3. IMITREX [Concomitant]
     Indication: HEADACHE
     Dosage: 50 MG, PRN
     Route: 048
     Dates: start: 20091113
  4. NAPROXEN SODIUM W/PSEUDOEPHEDRINE HCL [Concomitant]
     Indication: HEADACHE
     Dosage: 500 MG, PRN
     Route: 048
     Dates: start: 20100108
  5. QUETIAPINE [Concomitant]
     Dosage: 25 MG, UNK
     Route: 048
     Dates: start: 20100108
  6. OXYCODONE/APAP [Concomitant]
     Dosage: UNK
     Route: 048
     Dates: start: 20100108
  7. OMEPRAZOLE [Concomitant]
     Dosage: 20 MG, UNK
     Dates: start: 201001
  8. TRAZODONE [Concomitant]
     Dosage: 50 MG, UNK
     Route: 048
     Dates: start: 201001

REACTIONS (12)
  - Cholecystitis chronic [None]
  - Depression [None]
  - Anxiety [None]
  - Scar [None]
  - Injury [Unknown]
  - Abdominal distension [None]
  - Flatulence [None]
  - Dyspepsia [None]
  - Constipation [None]
  - Diarrhoea [None]
  - Cholecystectomy [Unknown]
  - Off label use [None]
